FAERS Safety Report 7359250-7 (Version None)
Quarter: 2011Q1

REPORT INFORMATION
  Report Type: 
  Country: None (occurrence: None)
  Receive Date: 20110317
  Receipt Date: 20091016
  Transmission Date: 20110831
  Serious: No
  Sender: FDA-Public Use
  Company Number: US-PFIZER INC-2009284969

PATIENT
  Age: 71 Year
  Sex: Male
  Weight: 84.8 kg

DRUGS (5)
  1. ACETYLSALICYLIC ACID [Concomitant]
  2. NORVASC [Suspect]
     Indication: BLOOD PRESSURE ABNORMAL
     Dosage: 5 MG, 1X/DAY
  3. LIPITOR [Concomitant]
     Dosage: 20 MG, 1X/DAY
  4. NORVASC [Suspect]
     Indication: ANGINA PECTORIS
  5. METFORMIN [Concomitant]
     Dosage: 3 TABLETS/DAY

REACTIONS (2)
  - DIZZINESS [None]
  - CHEST PAIN [None]
